FAERS Safety Report 9267814 (Version 1)
Quarter: 2013Q2

REPORT INFORMATION
  Report Type: Spontaneous
  Country: US (occurrence: US)
  Receive Date: 20130502
  Receipt Date: 20130502
  Transmission Date: 20140414
  Serious: No
  Sender: FDA-Public Use
  Company Number: US-ALEXION-A201201055

PATIENT
  Age: 76 Year
  Sex: Male
  Weight: 92 kg

DRUGS (8)
  1. SOLIRIS 300MG [Suspect]
     Indication: PAROXYSMAL NOCTURNAL HAEMOGLOBINURIA
     Dosage: 900 MG, Q2W
     Route: 042
     Dates: start: 20120203
  2. SOLIRIS 300MG [Suspect]
     Dosage: 600 MG, QW
     Route: 042
     Dates: start: 20120105, end: 20120127
  3. FERROUS SULFATE [Concomitant]
     Dosage: 325 MG, BID
     Route: 048
  4. FLOMAX [Concomitant]
     Dosage: 1 CAP QD
     Route: 048
  5. FOLIC ACID [Concomitant]
     Dosage: 1 CAP QD
     Route: 048
  6. GLUCOSAMINE/CHONDROITIN [Concomitant]
     Dosage: 500 MG, QD
     Route: 048
  7. MULTIVITAMIN [Concomitant]
     Dosage: 1 CAP QD
     Route: 048
  8. VITAMIN C [Concomitant]
     Dosage: UNK QD
     Route: 048

REACTIONS (3)
  - Feeling abnormal [Recovering/Resolving]
  - Blood lactate dehydrogenase increased [Unknown]
  - Haemoglobin decreased [Recovering/Resolving]
